FAERS Safety Report 15905711 (Version 13)
Quarter: 2020Q4

REPORT INFORMATION
  Report Type: Other
  Country: DE (occurrence: DE)
  Receive Date: 20190204
  Receipt Date: 20201231
  Transmission Date: 20210113
  Serious: Yes (Other)
  Sender: FDA-Public Use
  Company Number: DE-ROCHE-2171334

PATIENT
  Age: 36 Year
  Sex: Female

DRUGS (15)
  1. SATIVEX [Concomitant]
     Active Substance: NABIXIMOLS
  2. SIRDALUD [Concomitant]
     Active Substance: TIZANIDINE
     Indication: MUSCLE SPASTICITY
  3. OCREVUS [Suspect]
     Active Substance: OCRELIZUMAB
     Indication: RELAPSING-REMITTING MULTIPLE SCLEROSIS
     Route: 042
     Dates: start: 20180718
  4. OCREVUS [Suspect]
     Active Substance: OCRELIZUMAB
     Route: 042
     Dates: start: 20190911
  5. OCREVUS [Suspect]
     Active Substance: OCRELIZUMAB
     Route: 042
     Dates: start: 20200318
  6. KENTERA [Concomitant]
     Active Substance: OXYBUTYNIN
     Dosage: 24 TRANSDERMAL PATCH, EXCHANGE 2X/WEEK
     Route: 062
  7. OCREVUS [Suspect]
     Active Substance: OCRELIZUMAB
     Route: 042
     Dates: start: 20180801
  8. EFEROX [Concomitant]
     Active Substance: LEVOTHYROXINE SODIUM
  9. TAMSULOSIN [Concomitant]
     Active Substance: TAMSULOSIN
  10. BACLOFEN. [Concomitant]
     Active Substance: BACLOFEN
  11. OCREVUS [Suspect]
     Active Substance: OCRELIZUMAB
     Route: 042
     Dates: start: 20200908
  12. IBUPROFEN. [Concomitant]
     Active Substance: IBUPROFEN
  13. SIRDALUD [Concomitant]
     Active Substance: TIZANIDINE
     Dosage: AT NIGHT
  14. OCREVUS [Suspect]
     Active Substance: OCRELIZUMAB
     Route: 042
     Dates: start: 20190211
  15. DEKRISTOL [Concomitant]
     Active Substance: CHOLECALCIFEROL

REACTIONS (7)
  - Spinal pain [Recovered/Resolved]
  - Dysphagia [Recovered/Resolved]
  - Urinary tract infection [Unknown]
  - Muscle spasms [Not Recovered/Not Resolved]
  - Polymenorrhoea [Recovered/Resolved]
  - Fatigue [Recovered/Resolved]
  - Diarrhoea [Recovered/Resolved]

NARRATIVE: CASE EVENT DATE: 20180718
